FAERS Safety Report 10919460 (Version 1)
Quarter: 2015Q1

REPORT INFORMATION
  Report Type: Spontaneous
  Country: US (occurrence: US)
  Receive Date: 20150316
  Receipt Date: 20150316
  Transmission Date: 20150721
  Serious: Yes (Other)
  Sender: FDA-Public Use
  Company Number: US-ELI_LILLY_AND_COMPANY-US201503002845

PATIENT
  Sex: Female

DRUGS (3)
  1. HUMULIN N [Suspect]
     Active Substance: INSULIN HUMAN
     Indication: TYPE 1 DIABETES MELLITUS
     Dosage: UNK UNK, BID
     Route: 065
  2. SYNTHROID [Concomitant]
     Active Substance: LEVOTHYROXINE SODIUM
  3. INSULIN HUMAN [Suspect]
     Active Substance: INSULIN HUMAN
     Indication: TYPE 1 DIABETES MELLITUS
     Dosage: UNK UNK, TID
     Route: 065

REACTIONS (12)
  - Thyroid cancer [Unknown]
  - Feeling abnormal [Unknown]
  - Cataract [Unknown]
  - Bladder cyst [Unknown]
  - Middle ear effusion [Unknown]
  - Blood glucose decreased [Unknown]
  - Renal impairment [Unknown]
  - Retinal detachment [Unknown]
  - Pyelonephritis [Unknown]
  - Visual impairment [Unknown]
  - Neuropathy peripheral [Unknown]
  - Skin hypertrophy [Unknown]

NARRATIVE: CASE EVENT DATE: 1995
